FAERS Safety Report 14099829 (Version 4)
Quarter: 2017Q4

REPORT INFORMATION
  Report Type: Spontaneous
  Country: US (occurrence: US)
  Receive Date: 20171017
  Receipt Date: 20171226
  Transmission Date: 20180321
  Serious: Yes (Other)
  Sender: FDA-Public Use
  Company Number: US-SA-2017SA200728

PATIENT
  Age: 44 Year
  Sex: Male
  Weight: 102 kg

DRUGS (4)
  1. PERMETHRIN. [Concomitant]
     Active Substance: PERMETHRIN
     Dosage: 5%?DAILY FOR 7 DAYS
     Route: 065
  2. METHOTREXATE. [Concomitant]
     Active Substance: METHOTREXATE
     Indication: DERMATITIS ATOPIC
     Route: 065
     Dates: start: 20170825, end: 20171010
  3. DUPIXENT [Suspect]
     Active Substance: DUPILUMAB
     Indication: NEURODERMATITIS
     Route: 058
     Dates: start: 20170929, end: 20170929
  4. PREDNISONE. [Concomitant]
     Active Substance: PREDNISONE
     Indication: DERMATITIS ATOPIC
     Dosage: 40 MG/DAYX5 DAYS; 20 MG/DAYX5 DAYS
     Route: 065
     Dates: start: 20170912, end: 20171010

REACTIONS (2)
  - Hypersensitivity vasculitis [Recovered/Resolved]
  - Acute generalised exanthematous pustulosis [Recovered/Resolved]

NARRATIVE: CASE EVENT DATE: 20171005
